FAERS Safety Report 6198470-4 (Version None)
Quarter: 2009Q2

REPORT INFORMATION
  Report Type: 
  Country: None (occurrence: None)
  Receive Date: 20090521
  Receipt Date: 20090513
  Transmission Date: 20091009
  Serious: Yes (Hospitalization, Other)
  Sender: FDA-Public Use
  Company Number: PHHY2009BR18751

PATIENT
  Sex: Female
  Weight: 89 kg

DRUGS (11)
  1. FORASEQ [Suspect]
     Indication: ASTHMA
     Dosage: 1 DF, BID
     Dates: start: 20020101
  2. SYMBICORT [Suspect]
  3. FORMOTEROL W/BUDESONIDE [Suspect]
  4. BUDESONIDE [Suspect]
  5. MIFLONIDE [Suspect]
  6. ADALAT - SLOW RELEASE [Concomitant]
     Dosage: 20 MG, UNK
  7. HYDROCHLOROTHIAZIDE [Concomitant]
     Dosage: 25 MG, UNK
  8. ENALAPRIL MALEATE [Concomitant]
     Indication: BLOOD PRESSURE INCREASED
     Dosage: 10 MG, BID
     Route: 048
  9. LASIX [Concomitant]
     Indication: DIURETIC THERAPY
     Dosage: ONCE DAILY
     Route: 048
  10. DECADRON [Concomitant]
     Route: 042
  11. AMINOPHYLLINE [Concomitant]
     Route: 042

REACTIONS (10)
  - ASTHMA [None]
  - CONFUSIONAL STATE [None]
  - DEAFNESS [None]
  - DYSPHONIA [None]
  - DYSPNOEA [None]
  - FEAR [None]
  - HYPERTENSION [None]
  - NERVOUSNESS [None]
  - THROAT LESION [None]
  - WRONG TECHNIQUE IN DRUG USAGE PROCESS [None]
